FAERS Safety Report 7080062-6 (Version None)
Quarter: 2010Q4

REPORT INFORMATION
  Report Type: 
  Country: None (occurrence: None)
  Receive Date: 20101102
  Receipt Date: 20101025
  Transmission Date: 20110411
  Serious: Yes (Death)
  Sender: FDA-Public Use
  Company Number: JP-AMGEN-KDC436584

PATIENT

DRUGS (16)
  1. PANITUMUMAB [Suspect]
     Indication: COLORECTAL CANCER
     Dosage: 6 MG/KG, Q2WK
     Route: 041
     Dates: start: 20100623, end: 20100712
  2. IRINOTECAN HYDROCHLORIDE [Concomitant]
     Indication: COLORECTAL CANCER
     Dosage: 120 MG, Q2WK
     Route: 041
     Dates: start: 20100623
  3. IRINOTECAN HYDROCHLORIDE [Concomitant]
     Route: 041
     Dates: start: 20100623, end: 20100712
  4. FLUOROURACIL [Concomitant]
     Indication: COLORECTAL CANCER
     Dosage: 250 MG, Q2WK
     Route: 040
     Dates: start: 20100623
  5. FLUOROURACIL [Concomitant]
     Dosage: 1500 MG, Q2WK
     Route: 041
     Dates: start: 20100623
  6. FLUOROURACIL [Concomitant]
     Route: 040
     Dates: start: 20100623, end: 20100712
  7. FLUOROURACIL [Concomitant]
     Route: 041
     Dates: start: 20100623, end: 20100712
  8. CALCIUM LEVOFOLINATE [Concomitant]
     Indication: COLORECTAL CANCER
     Dosage: 200 MG, Q2WK
     Route: 041
     Dates: start: 20100623
  9. CALCIUM LEVOFOLINATE [Concomitant]
     Route: 041
     Dates: start: 20100623, end: 20100712
  10. ANTIHISTAMINES [Concomitant]
     Indication: PROPHYLAXIS
     Dosage: UNK UNK, UNK
     Route: 065
  11. ANTIHISTAMINES [Concomitant]
     Route: 065
  12. AMINOLEBAN [Concomitant]
     Dosage: UNK UNK, UNK
     Route: 042
  13. AMINOLEBAN [Concomitant]
     Route: 042
  14. LACTULOSE [Concomitant]
     Dosage: UNK UNK, UNK
     Route: 048
  15. LACTULOSE [Concomitant]
     Route: 048
  16. CORTICOSTEROIDS [Concomitant]
     Indication: PROPHYLAXIS
     Route: 065

REACTIONS (2)
  - COLORECTAL CANCER [None]
  - HEPATIC ENCEPHALOPATHY [None]
